FAERS Safety Report 18524629 (Version 1)
Quarter: 2020Q4

REPORT INFORMATION
  Report Type: Spontaneous
  Country: US (occurrence: US)
  Receive Date: 20201119
  Receipt Date: 20201119
  Transmission Date: 20210114
  Serious: No
  Sender: FDA-Public Use
  Company Number: US-PFIZER INC-2020455308

PATIENT
  Sex: Female

DRUGS (3)
  1. CHANTIX [Suspect]
     Active Substance: VARENICLINE TARTRATE
     Dosage: BLUE PILL
  2. CHANTIX [Suspect]
     Active Substance: VARENICLINE TARTRATE
     Dosage: BLUE PILL
  3. CHANTIX [Suspect]
     Active Substance: VARENICLINE TARTRATE
     Dosage: WHITE PILL

REACTIONS (1)
  - Headache [Unknown]

NARRATIVE: CASE EVENT DATE: 20201117
